FAERS Safety Report 7994117-2 (Version None)
Quarter: 2011Q4

REPORT INFORMATION
  Report Type: 
  Country: None (occurrence: None)
  Receive Date: 20111123
  Receipt Date: 20110919
  Transmission Date: 20120403
  Serious: No
  Sender: FDA-Public Use
  Company Number: 337140

PATIENT
  Age: 59 Year
  Sex: Female

DRUGS (2)
  1. VICTOZA [Suspect]
     Indication: PRODUCT USED FOR UNKNOWN INDICATION
     Dosage: 0.6 MG,QD, SUBCUTANEOUS, 1.2  MG,QD, SUBCUTANEOUS
     Route: 058
     Dates: start: 20110801
  2. VICTOZA [Suspect]

REACTIONS (1)
  - OROPHARYNGEAL PAIN [None]
